FAERS Safety Report 13667129 (Version 1)
Quarter: 2017Q2

REPORT INFORMATION
  Report Type: Spontaneous
  Country: US (occurrence: US)
  Receive Date: 20170619
  Receipt Date: 20170619
  Transmission Date: 20170830
  Serious: No
  Sender: FDA-Public Use
  Company Number: US-BAUSCH-BL-2017-002736

PATIENT
  Sex: Female

DRUGS (1)
  1. RELISTOR [Suspect]
     Active Substance: METHYLNALTREXONE BROMIDE
     Indication: CONSTIPATION
     Route: 065
     Dates: start: 20161018, end: 20170201

REACTIONS (5)
  - Vomiting [Unknown]
  - Abdominal pain [Not Recovered/Not Resolved]
  - Cold sweat [Unknown]
  - Adverse event [Unknown]
  - Nausea [Not Recovered/Not Resolved]
